FAERS Safety Report 8915592 (Version 1)
Quarter: 2012Q4

REPORT INFORMATION
  Report Type: Report from Study
  Country: US (occurrence: US)
  Receive Date: 20121119
  Receipt Date: 20121119
  Transmission Date: 20130627
  Serious: Yes (Hospitalization)
  Sender: FDA-Public Use
  Company Number: US-TEVA-370696USA

PATIENT
  Age: 54 Year
  Sex: Female
  Weight: 55 kg

DRUGS (6)
  1. GEMCITABINE [Suspect]
     Indication: BILE DUCT CANCER
     Dosage: 800 mg/m2
     Route: 042
     Dates: start: 20120820, end: 20120826
  2. GEMCITABINE [Suspect]
     Dosage: 640 mg/m2
     Route: 042
     Dates: start: 20120917, end: 20121008
  3. OXALIPLATIN [Suspect]
     Indication: BILE DUCT CANCER
     Dosage: 85 mg/m2
     Route: 042
     Dates: start: 20120821, end: 20120826
  4. OXALIPLATIN [Suspect]
     Dosage: 65 mg/m2
     Route: 042
     Dates: start: 20120918, end: 20121009
  5. TARCEVA [Suspect]
     Indication: BILE DUCT CANCER
     Route: 048
     Dates: start: 20120822, end: 20120905
  6. TARCEVA [Suspect]
     Route: 048
     Dates: start: 20120917, end: 20121012

REACTIONS (3)
  - Spinal compression fracture [Unknown]
  - Cancer pain [Unknown]
  - Nausea [Unknown]
